FAERS Safety Report 6571501-5 (Version None)
Quarter: 2010Q1

REPORT INFORMATION
  Report Type: 
  Country: None (occurrence: None)
  Receive Date: 20100205
  Receipt Date: 20100126
  Transmission Date: 20100710
  Serious: Yes (Other)
  Sender: FDA-Public Use
  Company Number: US-JNJFOC-20100201500

PATIENT
  Age: 89 Year
  Sex: Female
  Weight: 56.7 kg

DRUGS (12)
  1. TYLENOL (CAPLET) [Suspect]
     Route: 048
  2. TYLENOL (CAPLET) [Suspect]
     Indication: ARTHRITIS
     Route: 048
  3. METOPROLOL TARTRATE [Concomitant]
     Indication: HEART VALVE REPLACEMENT
  4. SIMVASTATIN [Concomitant]
     Indication: BLOOD CHOLESTEROL ABNORMAL
  5. NEXIUM [Concomitant]
     Indication: GASTROOESOPHAGEAL REFLUX DISEASE
  6. GLIPIZIDE [Concomitant]
     Dosage: 10 MG IN AM, 5 MG IN PM
  7. FUROSEMIDE [Concomitant]
     Indication: FLUID RETENTION
  8. ALENDRONATE SODIUM [Concomitant]
     Indication: OSTEOPOROSIS
  9. METFORMIN HCL [Concomitant]
  10. MOBIC [Concomitant]
     Indication: ARTHRITIS
  11. SPIRIVA [Concomitant]
     Indication: CHRONIC OBSTRUCTIVE PULMONARY DISEASE
     Dosage: IN AM
  12. ZOLPIDEM TARTRATE [Concomitant]
     Indication: SLEEP DISORDER THERAPY

REACTIONS (5)
  - ABDOMINAL PAIN [None]
  - DIARRHOEA [None]
  - HAEMATOCHEZIA [None]
  - NAUSEA [None]
  - PRODUCT QUALITY ISSUE [None]
